FAERS Safety Report 14935168 (Version 1)
Quarter: 2018Q2

REPORT INFORMATION
  Report Type: Spontaneous
  Country: US (occurrence: US)
  Receive Date: 20180524
  Receipt Date: 20180524
  Transmission Date: 20180711
  Serious: No
  Sender: FDA-Public Use
  Company Number: US-ASTRAZENECA-2018SE64256

PATIENT
  Sex: Female

DRUGS (1)
  1. NEXIUM [Suspect]
     Active Substance: ESOMEPRAZOLE MAGNESIUM
     Dosage: UNKNOWN DOSE
     Route: 048

REACTIONS (6)
  - Pain in extremity [Unknown]
  - Gastritis [Unknown]
  - Back pain [Unknown]
  - Headache [Unknown]
  - Intentional product misuse [Unknown]
  - Bone disorder [Unknown]
